FAERS Safety Report 9736373 (Version 2)
Quarter: 2013Q4

REPORT INFORMATION
  Report Type: Report from Study
  Country: CA (occurrence: CA)
  Receive Date: 20131206
  Receipt Date: 20131206
  Transmission Date: 20140711
  Serious: Yes (Other)
  Sender: FDA-Public Use
  Company Number: CA-ROCHE-1302569

PATIENT
  Sex: Female

DRUGS (10)
  1. ACTEMRA [Suspect]
     Indication: RHEUMATOID ARTHRITIS
     Route: 042
     Dates: start: 20110114
  2. ACTEMRA [Suspect]
     Route: 042
     Dates: start: 20110211
  3. ACTEMRA [Suspect]
     Route: 042
     Dates: start: 20110506
  4. ACTEMRA [Suspect]
     Route: 042
     Dates: start: 20110708
  5. ACTEMRA [Suspect]
     Route: 042
     Dates: start: 20110909
  6. ACTEMRA [Suspect]
     Route: 042
     Dates: start: 20130926
  7. METHOTREXATE [Suspect]
     Indication: PRODUCT USED FOR UNKNOWN INDICATION
     Route: 065
  8. CORTISONE [Concomitant]
  9. ACTONEL [Concomitant]
  10. FOLIC ACID [Concomitant]

REACTIONS (1)
  - Bronchiectasis [Unknown]
